FAERS Safety Report 19419677 (Version 1)
Quarter: 2021Q2

REPORT INFORMATION
  Report Type: Report from Study
  Country: NL (occurrence: NL)
  Receive Date: 20210615
  Receipt Date: 20210615
  Transmission Date: 20210717
  Serious: Yes (Hospitalization)
  Sender: FDA-Public Use
  Company Number: NL-AMGEN-NLDNI2021075943

PATIENT
  Age: 57 Year
  Sex: Female

DRUGS (6)
  1. DOMPERIDON [DOMPERIDONE] [Concomitant]
     Active Substance: DOMPERIDONE
     Dosage: UNK
     Dates: start: 20210420
  2. DOXYCYCLINE. [Concomitant]
     Active Substance: DOXYCYCLINE
     Dosage: 100 MILLIGRAM, QD
     Dates: start: 20210514, end: 20210522
  3. METOCLOPRAMIDE. [Concomitant]
     Active Substance: METOCLOPRAMIDE
     Dosage: UNK (Z.N)
     Route: 048
  4. AMG 510 [Suspect]
     Active Substance: AMG-510
     Dosage: UNK
     Route: 048
     Dates: start: 20210607
  5. AMG 510 [Suspect]
     Active Substance: AMG-510
     Dosage: 480 MILLIGRAM
     Route: 048
     Dates: start: 20200526
  6. AMG 510 [Suspect]
     Active Substance: AMG-510
     Indication: NON-SMALL CELL LUNG CANCER
     Dosage: 960 MILLIGRAM, QD
     Route: 048
     Dates: start: 20210421

REACTIONS (1)
  - Liver disorder [Not Recovered/Not Resolved]

NARRATIVE: CASE EVENT DATE: 20210517
